FAERS Safety Report 25014342 (Version 1)
Quarter: 2025Q1

REPORT INFORMATION
  Report Type: Spontaneous
  Country: FR (occurrence: FR)
  Receive Date: 20250226
  Receipt Date: 20250226
  Transmission Date: 20250409
  Serious: Yes (Hospitalization)
  Sender: MYLAN
  Company Number: None

PATIENT
  Age: 38 Year
  Sex: Male
  Weight: 64 kg

DRUGS (12)
  1. SERTRALINE [Suspect]
     Active Substance: SERTRALINE HYDROCHLORIDE
     Indication: Product used for unknown indication
  2. SERTRALINE [Suspect]
     Active Substance: SERTRALINE HYDROCHLORIDE
     Route: 065
  3. SERTRALINE [Suspect]
     Active Substance: SERTRALINE HYDROCHLORIDE
     Route: 065
  4. SERTRALINE [Suspect]
     Active Substance: SERTRALINE HYDROCHLORIDE
  5. KETOPROFEN [Suspect]
     Active Substance: KETOPROFEN
     Indication: Product used for unknown indication
  6. KETOPROFEN [Suspect]
     Active Substance: KETOPROFEN
     Route: 065
  7. KETOPROFEN [Suspect]
     Active Substance: KETOPROFEN
     Route: 065
  8. KETOPROFEN [Suspect]
     Active Substance: KETOPROFEN
  9. DOLIPRANE [Suspect]
     Active Substance: ACETAMINOPHEN
     Indication: Product used for unknown indication
  10. DOLIPRANE [Suspect]
     Active Substance: ACETAMINOPHEN
     Route: 065
  11. DOLIPRANE [Suspect]
     Active Substance: ACETAMINOPHEN
     Route: 065
  12. DOLIPRANE [Suspect]
     Active Substance: ACETAMINOPHEN

REACTIONS (1)
  - Poisoning deliberate [Recovered/Resolved]

NARRATIVE: CASE EVENT DATE: 20250115
